FAERS Safety Report 5730348-X (Version None)
Quarter: 2008Q2

REPORT INFORMATION
  Report Type: 
  Country: None (occurrence: None)
  Receive Date: 20080430
  Receipt Date: 20071221
  Transmission Date: 20081010
  Serious: No
  Sender: FDA-Public Use
  Company Number: 2007-US-000279

PATIENT
  Age: 11 Year
  Sex: Male
  Weight: 30.7 kg

DRUGS (2)
  1. INCRELEX [Suspect]
     Indication: INSULIN-LIKE GROWTH FACTOR DECREASED
     Dosage: 13 UL, BID, SUBCUTANEOUS ; 25 UT, BID, SUBCUTANEOUS
     Route: 058
     Dates: start: 20071115, end: 20071129
  2. INCRELEX [Suspect]
     Indication: INSULIN-LIKE GROWTH FACTOR DECREASED
     Dosage: 13 UL, BID, SUBCUTANEOUS ; 25 UT, BID, SUBCUTANEOUS
     Route: 058
     Dates: start: 20071130, end: 20071203

REACTIONS (2)
  - INJECTION SITE PRURITUS [None]
  - INJECTION SITE URTICARIA [None]
